FAERS Safety Report 8718084 (Version 6)
Quarter: 2013Q1

REPORT INFORMATION
  Report Type: Report from Study
  Country: KR (occurrence: KR)
  Receive Date: 20120810
  Receipt Date: 20130306
  Transmission Date: 20140127
  Serious: Yes (Hospitalization)
  Sender: FDA-Public Use
  Company Number: KR-JNJFOC-20111001165

PATIENT
  Age: 67 Year
  Sex: Female
  Weight: 48.4 kg

DRUGS (40)
  1. GOLIMUMAB [Suspect]
     Indication: RHEUMATOID ARTHRITIS
     Route: 042
     Dates: start: 20110809
  2. GOLIMUMAB [Suspect]
     Indication: RHEUMATOID ARTHRITIS
     Route: 042
     Dates: start: 20100813
  3. PLACEBO [Suspect]
     Indication: RHEUMATOID ARTHRITIS
     Route: 042
     Dates: start: 20110809
  4. PLACEBO [Suspect]
     Indication: RHEUMATOID ARTHRITIS
     Route: 042
     Dates: start: 20100813
  5. DIFLUCAN [Suspect]
     Indication: PNEUMONIA
     Dates: start: 20111011, end: 20111011
  6. DIFLUCAN [Suspect]
     Indication: PNEUMONIA
     Dates: start: 20111011, end: 20120803
  7. ADCAL [Concomitant]
     Indication: OSTEOPOROSIS
     Route: 048
     Dates: start: 20120414
  8. ADCAL [Concomitant]
     Indication: OSTEOPOROSIS
     Route: 048
     Dates: start: 20080911, end: 20120410
  9. METHYLON [Concomitant]
     Indication: RHEUMATOID ARTHRITIS
     Route: 048
     Dates: start: 20080922
  10. CURAN [Concomitant]
     Indication: GASTRITIS
     Route: 048
     Dates: start: 20080911, end: 20111024
  11. ACTONEL [Concomitant]
     Indication: OSTEOPOROSIS
     Route: 048
     Dates: start: 20080911
  12. MUCOSTA [Concomitant]
     Indication: GASTROINTESTINAL DISORDER THERAPY
     Route: 048
     Dates: start: 20081020, end: 20111014
  13. MUCOSTA [Concomitant]
     Indication: GASTROINTESTINAL DISORDER THERAPY
     Route: 048
     Dates: start: 20111015
  14. MUCOSTA [Concomitant]
     Indication: GASTRITIS
     Route: 048
     Dates: start: 20111015
  15. MUCOSTA [Concomitant]
     Indication: GASTRITIS
     Route: 048
     Dates: start: 20081020, end: 20111014
  16. BONALING A (DIMENHYDRINATE) [Concomitant]
     Indication: DIZZINESS
     Route: 048
     Dates: start: 20081020, end: 20111015
  17. ULTRACET [Concomitant]
     Indication: RHEUMATOID ARTHRITIS
     Route: 048
     Dates: start: 20101006, end: 20111014
  18. ULTRACET [Concomitant]
     Indication: RHEUMATOID ARTHRITIS
     Route: 048
     Dates: start: 20111015, end: 20111128
  19. ULTRACET [Concomitant]
     Indication: PAIN MANAGEMENT
     Route: 048
     Dates: start: 20111015, end: 20111128
  20. ULTRACET [Concomitant]
     Indication: PAIN MANAGEMENT
     Route: 048
     Dates: start: 20101006, end: 20111014
  21. FOLIC ACID [Concomitant]
     Indication: PROPHYLAXIS
     Route: 048
     Dates: start: 20080911
  22. METHYLPREDNISOLONE [Concomitant]
     Route: 048
     Dates: start: 20110926, end: 20110927
  23. CELEBREX [Concomitant]
     Indication: RHEUMATOID ARTHRITIS
     Route: 048
     Dates: start: 20111109
  24. CELEBREX [Concomitant]
     Indication: RHEUMATOID ARTHRITIS
     Route: 048
     Dates: start: 20111014, end: 20111108
  25. ACEBROPHYLINE [Concomitant]
     Route: 048
     Dates: start: 20110923, end: 20110925
  26. AMOXA [Concomitant]
     Route: 048
     Dates: start: 20110923, end: 20110925
  27. CEFOTAXIME SODIUM [Concomitant]
     Route: 042
     Dates: start: 20110928, end: 20111011
  28. KLARICID [Concomitant]
     Route: 042
     Dates: start: 20110928, end: 20111001
  29. MUTERAN [Concomitant]
     Route: 048
     Dates: start: 20111001, end: 20111007
  30. KLARICID [Concomitant]
     Route: 048
     Dates: start: 20111002, end: 20111007
  31. NORMAL SALINE [Concomitant]
     Route: 042
     Dates: start: 20111011, end: 20111011
  32. NORMAL SALINE [Concomitant]
     Route: 042
     Dates: start: 20111006, end: 20111006
  33. EPINEPHRINE [Concomitant]
     Indication: BRONCHOSCOPY
     Route: 030
     Dates: start: 20111006, end: 20111006
  34. ATROPINE SULFATE [Concomitant]
     Indication: BRONCHOSCOPY
     Route: 030
     Dates: start: 20111006, end: 20111006
  35. PROSPAN [Concomitant]
     Route: 048
     Dates: start: 20111006, end: 20111024
  36. HEXOMEDINE [Concomitant]
     Route: 048
     Dates: start: 20111014, end: 20111019
  37. ALL OTHER THERAPEUTIC PRODUCTS [Concomitant]
     Route: 048
     Dates: start: 20110916, end: 20110928
  38. ALL OTHER THERAPEUTIC PRODUCTS [Concomitant]
     Route: 048
     Dates: start: 20110921, end: 20110923
  39. ALL OTHER THERAPEUTIC PRODUCTS [Concomitant]
     Indication: INFLUENZA IMMUNISATION
     Route: 042
     Dates: start: 20111017, end: 20111017
  40. COUGH AND COLD MEDICATION [Concomitant]
     Route: 048
     Dates: start: 20110928, end: 20111005

REACTIONS (3)
  - Hyponatraemia [Recovered/Resolved]
  - Pneumonia cryptococcal [Recovered/Resolved]
  - Vomiting [Recovered/Resolved]
